FAERS Safety Report 5955811-8 (Version None)
Quarter: 2008Q4

REPORT INFORMATION
  Report Type: 
  Country: None (occurrence: None)
  Receive Date: 20081117
  Receipt Date: 20081107
  Transmission Date: 20090506
  Serious: Yes (Hospitalization)
  Sender: FDA-Public Use
  Company Number: JP-PFIZER INC-2008085173

PATIENT
  Sex: Male

DRUGS (5)
  1. NORVASC [Suspect]
     Indication: HYPERTENSION
     Route: 048
     Dates: start: 20070409, end: 20080831
  2. NORVASC [Suspect]
     Route: 048
     Dates: start: 20080906
  3. OLMETEC [Suspect]
     Indication: HYPERTENSION
     Route: 048
     Dates: start: 20070409, end: 20080831
  4. OLMETEC [Suspect]
     Route: 048
     Dates: start: 20080906
  5. LOXONIN [Suspect]
     Indication: RHEUMATOID ARTHRITIS
     Route: 048
     Dates: start: 20070206, end: 20080507

REACTIONS (1)
  - RHABDOMYOLYSIS [None]
